FAERS Safety Report 17206263 (Version 1)
Quarter: 2020Q1

REPORT INFORMATION
  Report Type: Spontaneous
  Country: US (occurrence: US)
  Receive Date: 20191226
  Receipt Date: 20191226
  Transmission Date: 20200409
  Serious: Yes (Hospitalization)
  Sender: FDA-Public Use
  Company Number: None

PATIENT
  Age: 27 Year
  Sex: Male

DRUGS (6)
  1. PREDNISONE TAB 20MG [Concomitant]
     Active Substance: PREDNISONE
     Dates: start: 20191221
  2. BUDESONIDE CAP 3MG [Concomitant]
     Dates: start: 20191125
  3. BUDESONIDE CAP 3MG DR [Concomitant]
     Dates: start: 20191125
  4. METRONIDAZOL TAB 250MG [Concomitant]
     Dates: start: 20191206, end: 20191226
  5. METRONIDAZOL TAB 250MG [Concomitant]
     Dates: start: 20191206, end: 20191226
  6. HUMIRA [Suspect]
     Active Substance: ADALIMUMAB
     Indication: PRODUCT USED FOR UNKNOWN INDICATION
     Dosage: ?          OTHER FREQUENCY:ARXWPNOTDISPENSED;OTHER ROUTE:ARXWP HAS NOT DISPENSED?

REACTIONS (1)
  - Abdominal pain [None]
